FAERS Safety Report 7434743-2 (Version None)
Quarter: 2011Q2

REPORT INFORMATION
  Report Type: 
  Country: None (occurrence: None)
  Receive Date: 20110425
  Receipt Date: 20110413
  Transmission Date: 20111010
  Serious: Yes (Other)
  Sender: FDA-Public Use
  Company Number: JP-ELI_LILLY_AND_COMPANY-JP201104004850

PATIENT
  Age: 65 Year
  Sex: Male

DRUGS (4)
  1. RISPERIDONE [Concomitant]
     Indication: SCHIZOPHRENIA
     Dosage: 3 MG, UNK
  2. NITRAZEPAM [Concomitant]
     Dosage: 15 MG, UNK
  3. OLANZAPINE [Suspect]
     Indication: SCHIZOPHRENIA
     Dosage: 5 MG, UNK
     Route: 048
  4. BROMAZEPAM [Concomitant]
     Dosage: 2 MG, UNK

REACTIONS (7)
  - BRADYKINESIA [None]
  - MUSCLE RIGIDITY [None]
  - BLOOD CREATINE PHOSPHOKINASE INCREASED [None]
  - ALTERED STATE OF CONSCIOUSNESS [None]
  - COGNITIVE DISORDER [None]
  - DEMENTIA WITH LEWY BODIES [None]
  - HYPERTHERMIA [None]
